FAERS Safety Report 13912922 (Version 1)
Quarter: 2017Q3

REPORT INFORMATION
  Report Type: Spontaneous
  Country: US (occurrence: US)
  Receive Date: 20170828
  Receipt Date: 20170828
  Transmission Date: 20171127
  Serious: No
  Sender: FDA-Public Use
  Company Number: US-SUNOVION-2016SUN003540

PATIENT

DRUGS (4)
  1. LITHIUM. [Suspect]
     Active Substance: LITHIUM
  2. LAMOTRIGINE. [Suspect]
     Active Substance: LAMOTRIGINE
  3. LATUDA [Suspect]
     Active Substance: LURASIDONE HYDROCHLORIDE
     Route: 048
  4. HYDROXINE [Suspect]
     Active Substance: HYDROXYZINE HYDROCHLORIDE

REACTIONS (2)
  - Swelling face [Unknown]
  - Weight increased [Unknown]
